FAERS Safety Report 6911853-7 (Version None)
Quarter: 2010Q3

REPORT INFORMATION
  Report Type: 
  Country: None (occurrence: None)
  Receive Date: 20100806
  Receipt Date: 20071003
  Transmission Date: 20110219
  Serious: No
  Sender: FDA-Public Use
  Company Number: US-PFIZER INC-2007063984

PATIENT
  Sex: Male
  Weight: 80 kg

DRUGS (12)
  1. DETROL LA [Suspect]
     Indication: URINARY INCONTINENCE
     Dates: start: 20070701
  2. LIPITOR [Concomitant]
  3. LANTUS [Concomitant]
  4. DYAZIDE [Concomitant]
  5. METOPROLOL [Concomitant]
  6. CARTIA XT [Concomitant]
  7. METFORMIN HCL [Concomitant]
  8. PREDNISOLONE [Concomitant]
  9. PAXIL [Concomitant]
  10. SERETIDE MITE [Concomitant]
  11. ALBUTEROL [Concomitant]
  12. ACETYLSALICYLIC ACID SRT [Concomitant]

REACTIONS (2)
  - DRUG INEFFECTIVE [None]
  - HAEMOGLOBIN DECREASED [None]
